FAERS Safety Report 11251798 (Version 1)
Quarter: 2015Q3

REPORT INFORMATION
  Report Type: Spontaneous
  Country: US (occurrence: US)
  Receive Date: 20150708
  Receipt Date: 20150708
  Transmission Date: 20151125
  Serious: No
  Sender: FDA-Public Use
  Company Number: US-ELI_LILLY_AND_COMPANY-US201208005052

PATIENT
  Age: 36 Year
  Sex: Female

DRUGS (1)
  1. ALIMTA [Suspect]
     Active Substance: PEMETREXED DISODIUM
     Indication: OVARIAN CANCER
     Dosage: UNK, UNKNOWN

REACTIONS (4)
  - Malaise [Unknown]
  - Vomiting [Unknown]
  - Off label use [Unknown]
  - Dysphagia [Unknown]
